FAERS Safety Report 20498263 (Version 1)
Quarter: 2022Q1

REPORT INFORMATION
  Report Type: Other
  Country: AU (occurrence: None)
  Receive Date: 20220222
  Receipt Date: 20220222
  Transmission Date: 20220423
  Serious: Yes (Hospitalization, Other)
  Sender: FDA-Public Use
  Company Number: AU-ROCHE-2929569

PATIENT
  Age: 67 Year
  Sex: Male

DRUGS (1)
  1. OCREVUS [Suspect]
     Active Substance: OCRELIZUMAB
     Indication: Relapsing-remitting multiple sclerosis
     Dosage: JUST FINISHED 2 X 300MG INTRO DOSING
     Route: 041
     Dates: start: 20210920

REACTIONS (13)
  - Multiple sclerosis relapse [Not Recovered/Not Resolved]
  - Rash [Not Recovered/Not Resolved]
  - Visual acuity reduced [Unknown]
  - Diplopia [Unknown]
  - Vision blurred [Not Recovered/Not Resolved]
  - Dizziness [Not Recovered/Not Resolved]
  - Gait disturbance [Not Recovered/Not Resolved]
  - Fall [Unknown]
  - Drug hypersensitivity [Unknown]
  - Malaise [Unknown]
  - Malaise [Recovered/Resolved]
  - Urinary tract infection [Not Recovered/Not Resolved]
  - Multiple sclerosis [Not Recovered/Not Resolved]

NARRATIVE: CASE EVENT DATE: 20211001
